FAERS Safety Report 5600670-6 (Version None)
Quarter: 2008Q1

REPORT INFORMATION
  Report Type: 
  Country: None (occurrence: None)
  Receive Date: 20080123
  Receipt Date: 20080111
  Transmission Date: 20080703
  Serious: Yes (Hospitalization)
  Sender: FDA-Public Use
  Company Number: SE-PFIZER INC-2008003699

PATIENT
  Sex: Female

DRUGS (13)
  1. PREDNISOLONE [Interacting]
     Indication: POLYMYALGIA RHEUMATICA
     Dosage: DAILY DOSE:7.5MG
     Route: 048
  2. ASPIRIN [Interacting]
     Indication: PROPHYLAXIS
     Route: 048
  3. ENOXAPARIN SODIUM [Interacting]
     Indication: PULMONARY EMBOLISM
     Dosage: DAILY DOSE:1.6ML
     Dates: start: 20070813, end: 20070916
  4. CITALOPRAM HYDROBROMIDE [Suspect]
     Indication: DEPRESSION
  5. GLUCOSAMINE [Concomitant]
     Route: 048
  6. OMEPRAZOLE [Concomitant]
  7. ACETAMINOPHEN [Concomitant]
     Route: 048
  8. IMPUGAN [Concomitant]
     Route: 048
  9. OXASCAND [Concomitant]
     Route: 048
  10. SELOKEEN ZOC [Concomitant]
     Route: 048
  11. DEXOFEN ^ASTRA^ [Concomitant]
     Route: 048
     Dates: start: 20070801, end: 20070916
  12. MIANSERIN [Concomitant]
     Route: 048
  13. GLYTRIN [Concomitant]

REACTIONS (1)
  - HAEMATOMA [None]
